FAERS Safety Report 21209187 (Version 1)
Quarter: 2022Q3

REPORT INFORMATION
  Report Type: Report from Study
  Country: MX (occurrence: MX)
  Receive Date: 20220813
  Receipt Date: 20220813
  Transmission Date: 20221027
  Serious: Yes (Hospitalization, Other)
  Sender: FDA-Public Use
  Company Number: MX-ABBOTT-2022A-1351863

PATIENT
  Age: 7 Year
  Sex: Female

DRUGS (4)
  1. DEPAKENE [Suspect]
     Active Substance: VALPROIC ACID
     Indication: Seizure
     Dosage: DAILY DOSE 18 ML, DEPAKENE SYRUP, 6 ML EVERY 8 HOURS
     Route: 048
     Dates: start: 201306
  2. DEPAKENE [Suspect]
     Active Substance: VALPROIC ACID
     Indication: Rett syndrome
  3. LAMICTAL [Concomitant]
     Active Substance: LAMOTRIGINE
     Indication: Seizure
     Dosage: DD 100 MILLIGRAM, 1 IN M AND IN A 10 ML SYRINGE.
     Route: 048
  4. TAMLET T [Concomitant]
     Indication: Seizure
     Dosage: DAILY DOSE 12 ML, 6 ML EVERY 12 HOURS
     Route: 048

REACTIONS (4)
  - Product use in unapproved indication [Unknown]
  - Seizure [Unknown]
  - Seizure [Unknown]
  - Drug ineffective [Unknown]

NARRATIVE: CASE EVENT DATE: 20140101
